FAERS Safety Report 15547127 (Version 1)
Quarter: 2018Q4

REPORT INFORMATION
  Report Type: Spontaneous
  Country: FR (occurrence: FR)
  Receive Date: 20181024
  Receipt Date: 20181024
  Transmission Date: 20190205
  Serious: Yes (Hospitalization)
  Sender: FDA-Public Use
  Company Number: PHHY2018FR135693

PATIENT
  Age: 24 Year
  Sex: Female
  Weight: 55 kg

DRUGS (10)
  1. VALIUM [Suspect]
     Active Substance: DIAZEPAM
     Indication: MENTAL DISORDER
     Dosage: 20 MG, QD
     Route: 048
     Dates: start: 20180905, end: 20180914
  2. LORAZEPAM. [Suspect]
     Active Substance: LORAZEPAM
     Indication: MENTAL DISORDER
     Dosage: 75 MG, QD
     Route: 048
     Dates: start: 20180907, end: 20180914
  3. THERALENE [Suspect]
     Active Substance: TRIMEPRAZINE
     Indication: MENTAL DISORDER
     Dosage: 30 GTT, QD
     Route: 048
     Dates: start: 20180822, end: 20180822
  4. LOXAPAC [Suspect]
     Active Substance: LOXAPINE
     Indication: MENTAL DISORDER
     Dosage: 4 MG, QD
     Route: 048
     Dates: start: 20180822, end: 20180909
  5. FLUOXETINE [Suspect]
     Active Substance: FLUOXETINE HYDROCHLORIDE
     Indication: MENTAL DISORDER
     Dosage: 120 MG, QD
     Route: 048
     Dates: start: 20180822, end: 20180914
  6. LEPTICUR [Suspect]
     Active Substance: TROPATEPINE HYDROCHLORIDE
     Indication: MENTAL DISORDER
     Dosage: 10 MG, QD
     Route: 048
     Dates: start: 20180822, end: 20180914
  7. ADEPAL [Suspect]
     Active Substance: ETHINYL ESTRADIOL\LEVONORGESTREL
     Indication: CONTRACEPTION
     Dosage: 21 ?G/L, UNK
     Route: 048
     Dates: start: 20180829, end: 20180913
  8. MOVICOL [Suspect]
     Active Substance: POLYETHYLENE GLYCOL 3350\POTASSIUM CHLORIDE\SODIUM BICARBONATE\SODIUM CHLORIDE
     Indication: CONSTIPATION
     Dosage: 1 ?G/L, QD
     Route: 048
     Dates: start: 20180822, end: 20180914
  9. CLOPIXOL [Suspect]
     Active Substance: ZUCLOPENTHIXOL
     Indication: MENTAL DISORDER
     Dosage: 25 MG, QD
     Route: 048
     Dates: start: 20180822, end: 20180911
  10. FUCIDINE (FUSIDATE SODIUM) [Concomitant]
     Active Substance: FUSIDATE SODIUM
     Indication: SKIN INFECTION
     Dosage: 1 ?G/L, QD
     Route: 003
     Dates: start: 20180905, end: 20180911

REACTIONS (1)
  - Hepatitis acute [Recovered/Resolved]

NARRATIVE: CASE EVENT DATE: 20180909
